FAERS Safety Report 20304369 (Version 1)
Quarter: 2022Q1

REPORT INFORMATION
  Report Type: Spontaneous
  Country: FR (occurrence: FR)
  Receive Date: 20220106
  Receipt Date: 20220106
  Transmission Date: 20220423
  Serious: Yes (Death, Hospitalization)
  Sender: FDA-Public Use
  Company Number: None

PATIENT
  Age: 40 Year
  Sex: Female
  Weight: 87 kg

DRUGS (4)
  1. OXALIPLATIN [Suspect]
     Active Substance: OXALIPLATIN
     Indication: Cholangiocarcinoma
     Dosage: 100 MG/M2
     Route: 041
     Dates: start: 20211012, end: 20211012
  2. OXALIPLATIN [Suspect]
     Active Substance: OXALIPLATIN
     Dosage: 100 MG/M2
     Route: 041
     Dates: start: 20210928, end: 20210928
  3. GEMCITABINE [Suspect]
     Active Substance: GEMCITABINE
     Indication: Cholangiocarcinoma
     Dosage: 800 MG/M2
     Route: 041
     Dates: start: 20211012, end: 20211012
  4. GEMCITABINE [Suspect]
     Active Substance: GEMCITABINE
     Dosage: 1000 MG/M2
     Route: 041
     Dates: start: 20210928, end: 20210928

REACTIONS (8)
  - Seizure [Fatal]
  - C-reactive protein increased [Fatal]
  - Acute kidney injury [Fatal]
  - Multiple organ dysfunction syndrome [Fatal]
  - Diarrhoea [Not Recovered/Not Resolved]
  - Thrombocytopenia [Not Recovered/Not Resolved]
  - Anaemia [Not Recovered/Not Resolved]
  - Hepatic failure [Not Recovered/Not Resolved]

NARRATIVE: CASE EVENT DATE: 20211012
